FAERS Safety Report 18016534 (Version 5)
Quarter: 2021Q1

REPORT INFORMATION
  Report Type: Report from Study
  Country: US (occurrence: US)
  Receive Date: 20200713
  Receipt Date: 20210218
  Transmission Date: 20210419
  Serious: Yes (Death, Other)
  Sender: FDA-Public Use
  Company Number: NVSC2020US196215

PATIENT
  Age: 72 Year
  Sex: Male

DRUGS (2)
  1. TAFINLAR [Suspect]
     Active Substance: DABRAFENIB MESYLATE
     Indication: MALIGNANT MELANOMA
     Dosage: 75 MG, BID
     Route: 065
     Dates: start: 201906
  2. MEKINIST [Suspect]
     Active Substance: TRAMETINIB DIMETHYL SULFOXIDE
     Indication: MALIGNANT MELANOMA
     Dosage: 1 MG, QD
     Route: 065
     Dates: start: 201906

REACTIONS (15)
  - General physical health deterioration [Unknown]
  - White blood cell count increased [Unknown]
  - Malaise [Unknown]
  - Death [Fatal]
  - Hypophagia [Unknown]
  - Vasogenic cerebral oedema [Unknown]
  - Heart rate decreased [Unknown]
  - Asthenia [Unknown]
  - Decreased appetite [Unknown]
  - Drug intolerance [Unknown]
  - Metastases to central nervous system [Unknown]
  - Diarrhoea [Unknown]
  - Fatigue [Unknown]
  - Muscle atrophy [Unknown]
  - Blood pressure increased [Unknown]

NARRATIVE: CASE EVENT DATE: 20200126
